FAERS Safety Report 10371197 (Version 1)
Quarter: 2014Q3

REPORT INFORMATION
  Report Type: Spontaneous
  Country: US (occurrence: US)
  Receive Date: 20140808
  Receipt Date: 20140808
  Transmission Date: 20150326
  Serious: No
  Sender: FDA-Public Use
  Company Number: US-PFIZER INC-2014218619

PATIENT
  Age: 55 Year
  Sex: Female
  Weight: 74.8 kg

DRUGS (3)
  1. ESTRING [Suspect]
     Active Substance: ESTRADIOL
     Indication: MENOPAUSAL SYMPTOMS
     Dosage: UNK
     Dates: start: 20140719, end: 20140802
  2. ARMOUR THYROID [Concomitant]
     Active Substance: THYROID, PORCINE\THYROID, UNSPECIFIED
     Indication: THYROID DISORDER
     Dosage: UNK
  3. PROGESTERONE. [Suspect]
     Active Substance: PROGESTERONE
     Dosage: UNK
     Route: 048

REACTIONS (10)
  - Chest pain [Not Recovered/Not Resolved]
  - Vulvovaginal swelling [Not Recovered/Not Resolved]
  - Headache [Unknown]
  - Rash [Unknown]
  - Vulvovaginal pain [Unknown]
  - Vaginal discharge [Unknown]
  - Influenza like illness [Not Recovered/Not Resolved]
  - Pain [Unknown]
  - Ear pain [Unknown]
  - Oropharyngeal pain [Unknown]

NARRATIVE: CASE EVENT DATE: 2014
